FAERS Safety Report 13537944 (Version 3)
Quarter: 2017Q2

REPORT INFORMATION
  Report Type: Spontaneous
  Country: US (occurrence: US)
  Receive Date: 20170511
  Receipt Date: 20170524
  Transmission Date: 20170830
  Serious: No
  Sender: FDA-Public Use
  Company Number: US-BIOGEN-2017BI00399123

PATIENT
  Age: 46 Year
  Sex: Female

DRUGS (2)
  1. PLEGRIDY [Suspect]
     Active Substance: PEGINTERFERON BETA-1A
     Route: 058
     Dates: start: 20170419
  2. PLEGRIDY [Suspect]
     Active Substance: PEGINTERFERON BETA-1A
     Indication: MULTIPLE SCLEROSIS
     Route: 065
     Dates: start: 20170419

REACTIONS (11)
  - Chills [Unknown]
  - Arthralgia [Unknown]
  - Poor quality drug administered [Unknown]
  - Anxiety [Recovered/Resolved]
  - Headache [Unknown]
  - Injection site erythema [Not Recovered/Not Resolved]
  - Procedural anxiety [Recovered/Resolved]
  - Visual impairment [Unknown]
  - Myalgia [Unknown]
  - Feeling abnormal [Unknown]
  - Memory impairment [Unknown]

NARRATIVE: CASE EVENT DATE: 20170419
